FAERS Safety Report 11808035 (Version 1)
Quarter: 2015Q4

REPORT INFORMATION
  Report Type: Spontaneous
  Country: PH (occurrence: PH)
  Receive Date: 20151207
  Receipt Date: 20151207
  Transmission Date: 20160305
  Serious: Yes (Hospitalization)
  Sender: FDA-Public Use
  Company Number: PHHY2015PH123025

PATIENT
  Age: 81 Year
  Sex: Female

DRUGS (11)
  1. RIVAROXABAN [Concomitant]
     Active Substance: RIVAROXABAN
     Indication: DEMENTIA ALZHEIMER^S TYPE
     Route: 065
  2. LEVETIRACETAM. [Concomitant]
     Active Substance: LEVETIRACETAM
     Indication: PRODUCT USED FOR UNKNOWN INDICATION
     Route: 065
     Dates: start: 201406, end: 201406
  3. RIVASTACH [Suspect]
     Active Substance: RIVASTIGMINE
     Indication: DEMENTIA ALZHEIMER^S TYPE
     Dosage: 4.6 MG, QD
     Route: 062
     Dates: start: 200904, end: 200908
  4. RIVASTACH [Suspect]
     Active Substance: RIVASTIGMINE
     Dosage: 13.3 MG, QD
     Route: 062
  5. RISPERIDONE. [Concomitant]
     Active Substance: RISPERIDONE
     Indication: PRODUCT USED FOR UNKNOWN INDICATION
     Dosage: UNK
     Route: 065
     Dates: start: 201406
  6. RIVASTACH [Suspect]
     Active Substance: RIVASTIGMINE
     Dosage: 9.5 MG, QD
     Route: 062
     Dates: start: 200908, end: 201403
  7. AMIODARONE HYDROCHLORIDE. [Concomitant]
     Active Substance: AMIODARONE HYDROCHLORIDE
     Indication: DEMENTIA ALZHEIMER^S TYPE
     Route: 065
  8. METOPROLOL TARTRATE. [Concomitant]
     Active Substance: METOPROLOL TARTRATE
     Indication: DEMENTIA ALZHEIMER^S TYPE
     Route: 065
  9. QUETIAPINE FUMARAT [Concomitant]
     Indication: RESTLESSNESS
  10. RIVASTACH [Suspect]
     Active Substance: RIVASTIGMINE
     Dosage: 13.3 MG, QD
     Route: 062
     Dates: start: 201403, end: 20150615
  11. QUETIAPINE FUMARAT [Concomitant]
     Indication: INSOMNIA
     Dosage: 25 MG, QD (HALF TO ONE TABLET)
     Route: 065
     Dates: start: 2012

REACTIONS (3)
  - Off label use [Unknown]
  - Chorea [Recovered/Resolved]
  - Extensor plantar response [Unknown]

NARRATIVE: CASE EVENT DATE: 200904
